FAERS Safety Report 10199469 (Version 1)
Quarter: 2014Q2

REPORT INFORMATION
  Report Type: Report from Study
  Country: IT (occurrence: IT)
  Receive Date: 20140527
  Receipt Date: 20140527
  Transmission Date: 20141212
  Serious: Yes (Death)
  Sender: FDA-Public Use
  Company Number: IT-BAXTER-2014BAX027098

PATIENT
  Sex: 0

DRUGS (6)
  1. ENDOXAN BAXTER [Suspect]
     Indication: IMMUNOSUPPRESSANT DRUG THERAPY
     Dosage: ON DAYS 3 AND 4
     Route: 065
  2. TREOSULFAN [Suspect]
     Indication: LEUKAEMIA
     Dosage: 14 G/M2 ON DAYS -6 TO -4
     Route: 065
  3. FLUDARABINE [Suspect]
     Indication: LEUKAEMIA
     Dosage: ON DAYS -6 TO -2
     Route: 065
  4. MELPHALAN [Suspect]
     Indication: LEUKAEMIA
     Dosage: ON DAYS -2 AND -1
     Route: 065
  5. MYCOPHENOLATE MOFETIL [Suspect]
     Indication: IMMUNOSUPPRESSANT DRUG THERAPY
     Route: 065
  6. SIROLIMUS [Suspect]
     Indication: IMMUNOSUPPRESSANT DRUG THERAPY
     Route: 065

REACTIONS (1)
  - Death [Fatal]
